FAERS Safety Report 16872308 (Version 1)
Quarter: 2019Q4

REPORT INFORMATION
  Report Type: Spontaneous
  Country: IT (occurrence: IT)
  Receive Date: 20191001
  Receipt Date: 20191001
  Transmission Date: 20200122
  Serious: Yes (Hospitalization, Other)
  Sender: FDA-Public Use
  Company Number: IT-AUROBINDO-AUR-APL-2019-063375

PATIENT
  Age: 47 Year
  Sex: Female

DRUGS (5)
  1. BLOPRESS [Suspect]
     Active Substance: CANDESARTAN CILEXETIL
     Indication: PRODUCT USED FOR UNKNOWN INDICATION
     Dosage: UNK
     Route: 048
     Dates: start: 20190325
  2. TRAMADOL+PARACETAMOL FILM-COATED TABLET [Suspect]
     Active Substance: ACETAMINOPHEN\TRAMADOL
     Indication: PRODUCT USED FOR UNKNOWN INDICATION
     Dosage: UNK
     Route: 048
  3. PASADEN [ETIZOLAM] [Suspect]
     Active Substance: ETIZOLAM
     Indication: ANXIETY
     Dosage: UNK
     Route: 048
     Dates: start: 20190325
  4. PARACODINA [DIHYDROCODEINE THIOCYANATE] [Suspect]
     Active Substance: DIHYDROCODEINE THIOCYANATE
     Indication: PRODUCT USED FOR UNKNOWN INDICATION
     Dosage: UNK
     Route: 048
     Dates: start: 20190325
  5. SERACTIL [Suspect]
     Active Substance: DEXIBUPROFEN
     Indication: PRODUCT USED FOR UNKNOWN INDICATION
     Dosage: UNK
     Route: 048
     Dates: start: 20190325

REACTIONS (2)
  - Substance abuse [Recovering/Resolving]
  - Sopor [Recovering/Resolving]

NARRATIVE: CASE EVENT DATE: 20190325
